FAERS Safety Report 6199237-3 (Version None)
Quarter: 2009Q2

REPORT INFORMATION
  Report Type: 
  Country: None (occurrence: None)
  Receive Date: 20090519
  Receipt Date: 20090519
  Transmission Date: 20091009
  Serious: Yes (Other)
  Sender: FDA-Public Use
  Company Number: None

PATIENT
  Age: 6 Year
  Sex: Female
  Weight: 30.8446 kg

DRUGS (1)
  1. LORATADINE [Suspect]
     Indication: MULTIPLE ALLERGIES
     Dosage: 2 TEASPOONS 1X 24 HR. PO
     Route: 048
     Dates: start: 20090429, end: 20090503

REACTIONS (6)
  - ABNORMAL BEHAVIOUR [None]
  - ANXIETY [None]
  - CRYING [None]
  - DEPRESSION [None]
  - FATIGUE [None]
  - SCHOOL REFUSAL [None]
